FAERS Safety Report 25902719 (Version 1)
Quarter: 2025Q4

REPORT INFORMATION
  Report Type: Spontaneous
  Country: CN (occurrence: CN)
  Receive Date: 20251009
  Receipt Date: 20251009
  Transmission Date: 20260117
  Serious: Yes (Hospitalization, Other)
  Sender: ELI LILLY AND COMPANY
  Company Number: CN-Merck Healthcare KGaA-2025049917

PATIENT
  Age: 75 Year
  Sex: Female

DRUGS (3)
  1. ERBITUX [Suspect]
     Active Substance: CETUXIMAB
     Indication: Colon cancer
     Dosage: 300 MG, UNKNOWN
     Route: 041
     Dates: start: 20250919, end: 20250919
  2. FLUOROURACIL [Suspect]
     Active Substance: FLUOROURACIL
     Indication: Colon cancer
     Dosage: 1.3 G, DAILY
     Route: 065
     Dates: start: 20250919, end: 20250919
  3. CALCIUM FOLINATE AND SODIUM CHLORIDE [Concomitant]
     Indication: Colon cancer
     Dosage: 260 MG, UNKNOWN
     Route: 041
     Dates: start: 20250919, end: 20250919

REACTIONS (1)
  - Myelosuppression [Recovered/Resolved]

NARRATIVE: CASE EVENT DATE: 20250923
